FAERS Safety Report 15783022 (Version 6)
Quarter: 2021Q1

REPORT INFORMATION
  Report Type: Spontaneous
  Country: US (occurrence: US)
  Receive Date: 20190102
  Receipt Date: 20210304
  Transmission Date: 20210419
  Serious: No
  Sender: FDA-Public Use
  Company Number: US-PFIZER INC-2019000568

PATIENT
  Age: 63 Year
  Sex: Male
  Weight: 66 kg

DRUGS (4)
  1. LYRICA [Suspect]
     Active Substance: PREGABALIN
     Indication: EPILEPSY
     Dosage: 75 MG (1 CAPSULE), 2X/DAY
     Route: 048
     Dates: start: 20210205
  2. LYRICA [Suspect]
     Active Substance: PREGABALIN
     Indication: PAIN
  3. LYRICA [Suspect]
     Active Substance: PREGABALIN
     Indication: ROTATOR CUFF SYNDROME
     Dosage: UNK
     Route: 048
  4. LYRICA [Suspect]
     Active Substance: PREGABALIN
     Indication: IDIOPATHIC GENERALISED EPILEPSY
     Dosage: 75 MG, 2X/DAY
     Route: 048
     Dates: start: 20181231

REACTIONS (2)
  - Product dose omission issue [Unknown]
  - Malaise [Unknown]

NARRATIVE: CASE EVENT DATE: 201812
